FAERS Safety Report 17278285 (Version 1)
Quarter: 2020Q1

REPORT INFORMATION
  Report Type: Spontaneous
  Country: US (occurrence: US)
  Receive Date: 20200116
  Receipt Date: 20200116
  Transmission Date: 20200409
  Serious: Yes (Other)
  Sender: FDA-Public Use
  Company Number: None

PATIENT
  Age: 82 Year
  Sex: Male

DRUGS (1)
  1. CEFEPIME [Suspect]
     Active Substance: CEFEPIME HYDROCHLORIDE
     Indication: INFECTION
     Dates: start: 20191222, end: 20191226

REACTIONS (4)
  - Asthenia [None]
  - Unresponsive to stimuli [None]
  - Cognitive disorder [None]
  - Fatigue [None]

NARRATIVE: CASE EVENT DATE: 20191223
